FAERS Safety Report 14840474 (Version 1)
Quarter: 2018Q2

REPORT INFORMATION
  Report Type: Spontaneous
  Country: DE (occurrence: DE)
  Receive Date: 20180503
  Receipt Date: 20180503
  Transmission Date: 20180711
  Serious: Yes (Hospitalization)
  Sender: FDA-Public Use
  Company Number: DE-CONCORDIA PHARMACEUTICALS INC.-E2B_00011531

PATIENT
  Age: 60 Year
  Sex: Male
  Weight: 80 kg

DRUGS (16)
  1. PANTOPRAZOL [Concomitant]
     Active Substance: PANTOPRAZOLE SODIUM
     Dosage: 40 MG, 0-1-0-0, TABLETTEN
     Route: 048
  2. DEKRISTOL 20000I.E. [Concomitant]
     Dosage: 20000 IE, SCHEMA, KAPSELN
     Route: 048
  3. ADVAGRAF 1MG [Suspect]
     Active Substance: TACROLIMUS
     Dosage: 1 MG, 1-0-0-0, KAPSELN
     Route: 048
  4. METOPROLOL. [Concomitant]
     Active Substance: METOPROLOL
     Dosage: 95 MG, 1-0-1-0, TABLETTEN
     Route: 048
  5. EXJADE [Concomitant]
     Active Substance: DEFERASIROX
     Dosage: SCHEMA, TABLETTEN
     Route: 048
  6. CPS PULVER [Concomitant]
     Dosage: 1-0-0-0, PULVER
     Route: 048
  7. NOXAFIL 100MG [Concomitant]
     Dosage: 100 MG, 0-3-0-0, TABLETTEN
     Route: 048
  8. AMLODIPIN [Concomitant]
     Active Substance: AMLODIPINE BESYLATE
     Dosage: 5 MG, 1-0-0-0, TABLETTEN
     Route: 048
  9. LORAZEPAM. [Concomitant]
     Active Substance: LORAZEPAM
     Dosage: 1 MG, BEDARF, TABLETTEN
     Route: 048
  10. NPLATE 250MIKROGRAMM [Concomitant]
     Dosage: 250 ?G, SCHEMA, INJEKTIONS-/INFUSIONSL?SUNG
     Route: 058
  11. ACTRAPID [Concomitant]
     Active Substance: INSULIN HUMAN
     Dosage: SNACH PLAN, INJEKTIONS-/INFUSIONSL?SUNG
     Route: 058
  12. PREDNISOLONE. [Suspect]
     Active Substance: PREDNISOLONE
     Dosage: 5 MG, 1-0-0-0, TABLETTEN
     Route: 048
  13. ACICLOVIR [Concomitant]
     Active Substance: ACYCLOVIR
     Dosage: 400 MG, 1-0-1-0, TABLETTEN
     Route: 048
  14. MAGNETRANS EXTRA 243MG [Concomitant]
     Dosage: 243 MG, 1-1-1-1, KAPSELN
     Route: 048
  15. RAMIPRIL. [Concomitant]
     Active Substance: RAMIPRIL
     Dosage: 5 MG, 1-0-1-0, TABLETTEN
     Route: 048
  16. COTRIM FORTE [Concomitant]
     Active Substance: SULFAMETHOXAZOLE\TRIMETHOPRIM
     Dosage: 800|160 MG, SCHEMA, TABLETTEN
     Route: 048

REACTIONS (7)
  - Chills [Unknown]
  - C-reactive protein increased [None]
  - Pyrexia [Unknown]
  - General physical health deterioration [Unknown]
  - Oedema peripheral [Unknown]
  - Musculoskeletal pain [Unknown]
  - Cough [Unknown]
